FAERS Safety Report 5868980-5 (Version None)
Quarter: 2008Q3

REPORT INFORMATION
  Report Type: 
  Country: None (occurrence: None)
  Receive Date: 20080903
  Receipt Date: 20080827
  Transmission Date: 20090109
  Serious: Yes (Hospitalization, Other)
  Sender: FDA-Public Use
  Company Number: US-GILEAD-2008-0016418

PATIENT
  Sex: Female

DRUGS (15)
  1. LETAIRIS [Suspect]
     Route: 048
  2. PREDNISONE TAB [Concomitant]
     Dates: start: 20080101, end: 20080201
  3. COUMADIN [Concomitant]
  4. NORVASC [Concomitant]
  5. ASPIRIN [Concomitant]
  6. LIPITOR [Concomitant]
  7. BUMEX [Concomitant]
  8. CALCIUM [Concomitant]
  9. POTASSIUM CHLORIDE [Concomitant]
     Indication: SUPPLEMENTATION THERAPY
  10. PREMARIN [Concomitant]
  11. DURAGESIC-100 [Concomitant]
     Route: 062
  12. PROTONIX [Concomitant]
  13. DISALCID [Concomitant]
  14. DIOVAN [Concomitant]
  15. COMBIVENT [Concomitant]

REACTIONS (3)
  - ANAEMIA [None]
  - CARDIAC FAILURE CONGESTIVE [None]
  - FLUID RETENTION [None]
